FAERS Safety Report 25212706 (Version 2)
Quarter: 2025Q2

REPORT INFORMATION
  Report Type: Spontaneous
  Country: US (occurrence: US)
  Receive Date: 20250418
  Receipt Date: 20250512
  Transmission Date: 20250716
  Serious: No
  Sender: BAUSCH AND LOMB
  Company Number: US-BAUSCH-BL-2025-004971

PATIENT
  Age: 35 Year
  Sex: Female

DRUGS (2)
  1. RETIN-A [Suspect]
     Active Substance: TRETINOIN
     Indication: Acne
     Dosage: AS DIRECTED NIGHTLY
     Route: 065
     Dates: end: 20250409
  2. RETIN-A [Suspect]
     Active Substance: TRETINOIN
     Route: 065
     Dates: start: 2025

REACTIONS (1)
  - Dermatitis acneiform [Recovered/Resolved]
